FAERS Safety Report 6531711-X (Version None)
Quarter: 2010Q1

REPORT INFORMATION
  Report Type: 
  Country: None (occurrence: None)
  Receive Date: 20100108
  Receipt Date: 20091228
  Transmission Date: 20100710
  Serious: Yes (Death, Other)
  Sender: FDA-Public Use
  Company Number: FR-BRISTOL-MYERS SQUIBB COMPANY-14921191

PATIENT
  Age: 64 Year
  Sex: Male

DRUGS (9)
  1. GLUCOPHAGE [Suspect]
     Indication: TYPE 2 DIABETES MELLITUS
     Route: 048
     Dates: end: 20091103
  2. BARACLUDE [Suspect]
     Indication: HEPATITIS B
     Route: 048
     Dates: start: 20080101, end: 20091103
  3. DIAMOX SRC [Suspect]
     Indication: GLAUCOMA
     Dosage: FORMULATION:TABLET
     Route: 048
     Dates: start: 20091020, end: 20091103
  4. COSOPT [Suspect]
     Indication: GLAUCOMA
     Dosage: EYE DROPS,SOLUTION
     Route: 047
     Dates: start: 20091020, end: 20091103
  5. DIAMICRON [Suspect]
     Indication: TYPE 2 DIABETES MELLITUS
     Dosage: FORMULATION:TABLET
     Route: 048
     Dates: end: 20091103
  6. TEMERIT [Suspect]
     Indication: VENTRICULAR TACHYARRHYTHMIA
     Dosage: STRENGTH:5MG;FORMULATION:TABLET
     Route: 048
     Dates: start: 20080101, end: 20091103
  7. CO-RENITEC [Suspect]
     Indication: VENTRICULAR TACHYARRHYTHMIA
     Dosage: FROMULATION:TABLET
     Route: 048
     Dates: start: 20080101, end: 20091103
  8. PREVISCAN [Concomitant]
     Route: 048
  9. XALATAN [Concomitant]

REACTIONS (9)
  - CARDIO-RESPIRATORY ARREST [None]
  - COMA [None]
  - ELECTROCARDIOGRAM QT PROLONGED [None]
  - GASTROINTESTINAL HAEMORRHAGE [None]
  - HYPOKALAEMIA [None]
  - LACTIC ACIDOSIS [None]
  - PERITONEAL INFECTION [None]
  - RENAL FAILURE [None]
  - VENTRICULAR TACHYCARDIA [None]
